FAERS Safety Report 15575869 (Version 1)
Quarter: 2018Q4

REPORT INFORMATION
  Report Type: Spontaneous
  Country: PT (occurrence: PT)
  Receive Date: 20181101
  Receipt Date: 20181101
  Transmission Date: 20190205
  Serious: Yes (Death, Other)
  Sender: FDA-Public Use
  Company Number: PT-ASTRAZENECA-2018SF41887

PATIENT
  Age: 58 Year
  Sex: Male

DRUGS (1)
  1. TICAGRELOR. [Suspect]
     Active Substance: TICAGRELOR
     Dosage: 180 UNKNOWN
     Route: 048
     Dates: start: 20181021

REACTIONS (2)
  - Aortic dissection [Unknown]
  - Death [Fatal]

NARRATIVE: CASE EVENT DATE: 20181022
